FAERS Safety Report 21365275 (Version 3)
Quarter: 2025Q2

REPORT INFORMATION
  Report Type: Spontaneous
  Country: US (occurrence: US)
  Receive Date: 20220922
  Receipt Date: 20250410
  Transmission Date: 20250716
  Serious: Yes (Other)
  Sender: NOVEN
  Company Number: US-NOVEN PHARMACEUTICALS, INC.-2022-NOV-US000876

PATIENT
  Sex: Female

DRUGS (4)
  1. MINIVELLE [Suspect]
     Active Substance: ESTRADIOL
     Indication: Hormone replacement therapy
     Dosage: 0.1MG, EVERY 3-4 DAYS
     Route: 062
     Dates: start: 202106
  2. MINIVELLE [Suspect]
     Active Substance: ESTRADIOL
     Indication: Menopause
     Route: 062
  3. MINIVELLE [Suspect]
     Active Substance: ESTRADIOL
     Route: 062
  4. MINIVELLE [Suspect]
     Active Substance: ESTRADIOL
     Route: 062

REACTIONS (4)
  - Uterine disorder [Recovered/Resolved]
  - Intervertebral disc operation [Recovered/Resolved]
  - Postmenopausal haemorrhage [Recovered/Resolved]
  - Migraine [Not Recovered/Not Resolved]

NARRATIVE: CASE EVENT DATE: 20200101
